FAERS Safety Report 6216054-6 (Version None)
Quarter: 2009Q2

REPORT INFORMATION
  Report Type: 
  Country: None (occurrence: None)
  Receive Date: 20090605
  Receipt Date: 20090526
  Transmission Date: 20091009
  Serious: Yes (Other)
  Sender: FDA-Public Use
  Company Number: US-BRISTOL-MYERS SQUIBB COMPANY-14645212

PATIENT
  Age: 68 Year
  Sex: Female
  Weight: 62 kg

DRUGS (12)
  1. CETUXIMAB [Suspect]
     Indication: TRANSITIONAL CELL CARCINOMA
     Dosage: CHIMERIC ANTI-EGFR MAB INITIALY TAKEN ON 08FEB2009, CYCLES-3
     Route: 042
     Dates: start: 20090218
  2. CISPLATIN [Suspect]
     Indication: TRANSITIONAL CELL CARCINOMA
     Dosage: INITIALY TAKEN ON 08FEB2009, CYCLES-3
     Route: 042
     Dates: start: 20090218
  3. GEMCITABINE [Suspect]
     Indication: TRANSITIONAL CELL CARCINOMA
     Dosage: NO OF CYCLES-3
     Route: 042
     Dates: start: 20090218
  4. XANAX [Concomitant]
     Route: 048
  5. NORVASC [Concomitant]
     Route: 048
  6. CALCIUM [Concomitant]
     Route: 065
  7. VITAMIN D [Concomitant]
     Route: 048
  8. DECADRON [Concomitant]
     Route: 048
  9. ORTHO-EST [Concomitant]
     Route: 048
  10. MINOCYCLINE HCL [Concomitant]
     Route: 048
  11. ZOFRAN [Concomitant]
     Indication: NAUSEA
     Route: 048
  12. COMPAZINE [Concomitant]
     Dosage: Q4-6 HRS
     Route: 048

REACTIONS (1)
  - DEEP VEIN THROMBOSIS [None]
